FAERS Safety Report 17245544 (Version 1)
Quarter: 2020Q1

REPORT INFORMATION
  Report Type: Spontaneous
  Country: CA (occurrence: CA)
  Receive Date: 20200108
  Receipt Date: 20200108
  Transmission Date: 20200409
  Serious: Yes (Hospitalization, Other)
  Sender: FDA-Public Use
  Company Number: CA-TEVA-2020-CA-1164927

PATIENT
  Age: 16 Year
  Sex: Female
  Weight: 51 kg

DRUGS (3)
  1. COTRIMOXAZOLE [Concomitant]
     Active Substance: SULFAMETHOXAZOLE\TRIMETHOPRIM
  2. ONDANSETRON [Concomitant]
     Active Substance: ONDANSETRON
  3. METHOTREXATE. [Suspect]
     Active Substance: METHOTREXATE
     Indication: PRECURSOR B-LYMPHOBLASTIC LYMPHOMA
     Route: 037

REACTIONS (8)
  - Blindness transient [Recovered/Resolved]
  - Dysarthria [Recovered/Resolved]
  - Asthenia [Recovered/Resolved]
  - Headache [Recovered/Resolved]
  - Hemiplegia [Recovered/Resolved]
  - Vision blurred [Recovered/Resolved]
  - Central nervous system vasculitis [Recovered/Resolved]
  - Confusional state [Recovered/Resolved]
